FAERS Safety Report 23867267 (Version 1)
Quarter: 2024Q2

REPORT INFORMATION
  Report Type: Other
  Country: US (occurrence: None)
  Receive Date: 20240517
  Receipt Date: 20240517
  Transmission Date: 20240715
  Serious: Yes (Other)
  Sender: FDA-Public Use
  Company Number: US-Navinta LLC-000498

PATIENT
  Age: 67 Year
  Sex: Female

DRUGS (1)
  1. HYDRALAZINE [Suspect]
     Active Substance: HYDRALAZINE HYDROCHLORIDE
     Indication: Hypertension

REACTIONS (3)
  - Antinuclear antibody [Unknown]
  - Antineutrophil cytoplasmic antibody [Unknown]
  - Glomerulonephritis [Unknown]
